FAERS Safety Report 9403880 (Version 1)
Quarter: 2013Q3

REPORT INFORMATION
  Report Type: Spontaneous
  Country: GB (occurrence: None)
  Receive Date: 20130712
  Receipt Date: 20130712
  Transmission Date: 20140515
  Serious: Yes (Other)
  Sender: FDA-Public Use
  Company Number: AUR-APL-2013-05762

PATIENT
  Age: 55 Year
  Sex: 0

DRUGS (7)
  1. RIBAVIRIN [Suspect]
     Indication: HEPATITIS C
     Route: 048
  2. TELAPREVIR [Suspect]
     Indication: HEPATITIS C
     Route: 048
  3. PEGINTERFERON [Suspect]
     Indication: HEPATITIS C
     Route: 058
  4. ARIPRAZOLE (ARIPIRAZOLE) [Concomitant]
  5. CITALOPRAM (CITALOPRAM) [Concomitant]
  6. CLOZAPINE (CLOZAPINE) [Concomitant]
  7. TOPIRAMATE (TOPIRAMATE) [Concomitant]

REACTIONS (3)
  - Platelet count decreased [None]
  - White blood cell count decreased [None]
  - Haemoglobin decreased [None]
